FAERS Safety Report 7130588-1 (Version None)
Quarter: 2010Q4

REPORT INFORMATION
  Report Type: 
  Country: None (occurrence: None)
  Receive Date: 20101101
  Receipt Date: 20100831
  Transmission Date: 20110411
  Serious: No
  Sender: FDA-Public Use
  Company Number: 2010-11711

PATIENT
  Age: 62 Year
  Sex: Male
  Weight: 74.8 kg

DRUGS (2)
  1. RAPAFLO [Suspect]
     Indication: BENIGN PROSTATIC HYPERPLASIA
     Dosage: 8 MG, DAILY, ORAL
     Route: 048
     Dates: start: 20100825
  2. LISINOPRIL [Concomitant]

REACTIONS (3)
  - BLOOD PRESSURE DECREASED [None]
  - FACIAL PARESIS [None]
  - FATIGUE [None]
